FAERS Safety Report 24096445 (Version 1)
Quarter: 2024Q3

REPORT INFORMATION
  Report Type: Report from Study
  Country: KR (occurrence: KR)
  Receive Date: 20240716
  Receipt Date: 20240716
  Transmission Date: 20241016
  Serious: Yes (Other)
  Sender: TAKEDA
  Company Number: KR-TAKEDA-2024TUS069934

PATIENT
  Sex: Male

DRUGS (4)
  1. BRIGATINIB [Suspect]
     Active Substance: BRIGATINIB
     Indication: Non-small cell lung cancer
     Dosage: 90 MILLIGRAM, QD
     Route: 048
     Dates: start: 20231220
  2. NAXEN S [Concomitant]
     Indication: Greater trochanteric pain syndrome
     Dosage: 1000/40 MILLIGRAM
     Route: 048
     Dates: start: 20231214
  3. VENITOL [Concomitant]
     Indication: Greater trochanteric pain syndrome
     Dosage: 1000 MILLIGRAM
     Route: 048
     Dates: start: 20231214
  4. GASTER [Concomitant]
     Active Substance: FAMOTIDINE
     Indication: Greater trochanteric pain syndrome
     Dosage: 40 MILLIGRAM
     Route: 048
     Dates: start: 20231214

REACTIONS (1)
  - Atypical pneumonia [Recovered/Resolved]

NARRATIVE: CASE EVENT DATE: 20240408
